FAERS Safety Report 11290104 (Version 2)
Quarter: 2015Q3

REPORT INFORMATION
  Report Type: Spontaneous
  Country: DE (occurrence: DE)
  Receive Date: 20150721
  Receipt Date: 20150818
  Transmission Date: 20151125
  Serious: Yes (Death)
  Sender: FDA-Public Use
  Company Number: DE-JNJFOC-20150709127

PATIENT
  Age: 77 Year
  Sex: Female
  Weight: 71.9 kg

DRUGS (10)
  1. DOXORUBICIN HYDROCHLORIDE (CAELYX) [Suspect]
     Active Substance: DOXORUBICIN HYDROCHLORIDE
     Indication: PALLIATIVE CARE
     Route: 042
     Dates: start: 20150603
  2. CISPLATIN. [Concomitant]
     Active Substance: CISPLATIN
     Indication: PALLIATIVE CARE
     Route: 042
     Dates: start: 20150603
  3. MEROPENEM. [Concomitant]
     Active Substance: MEROPENEM
     Indication: FEBRILE NEUTROPENIA
     Route: 065
  4. COTRIM [Concomitant]
     Active Substance: SULFAMETHOXAZOLE\TRIMETHOPRIM
     Indication: URINARY TRACT INFECTION
     Route: 048
  5. AVALOX [Concomitant]
     Active Substance: MOXIFLOXACIN HYDROCHLORIDE
     Indication: FEBRILE NEUTROPENIA
     Route: 065
  6. FILGRASTIM [Concomitant]
     Active Substance: FILGRASTIM
     Indication: NEUTROPENIA
     Route: 065
  7. METRONIDAZOLE. [Concomitant]
     Active Substance: METRONIDAZOLE
     Indication: DIARRHOEA
     Route: 048
  8. ACICLOVIR [Concomitant]
     Active Substance: ACYCLOVIR
     Indication: HERPES ZOSTER
     Route: 042
  9. CASPOFUNGIN [Concomitant]
     Active Substance: CASPOFUNGIN
     Route: 065
  10. AMIODARONE [Concomitant]
     Active Substance: AMIODARONE
     Indication: PRODUCT USED FOR UNKNOWN INDICATION
     Route: 065
     Dates: start: 201301

REACTIONS (9)
  - Systemic inflammatory response syndrome [Fatal]
  - Agranulocytosis [Not Recovered/Not Resolved]
  - Herpes zoster [Not Recovered/Not Resolved]
  - Neutropenia [Recovered/Resolved]
  - Clostridium difficile colitis [Unknown]
  - Urinary tract infection [Unknown]
  - Systemic mycosis [Unknown]
  - Catheter site infection [Unknown]
  - Delirium [Unknown]

NARRATIVE: CASE EVENT DATE: 20150607
